FAERS Safety Report 7892372-0 (Version None)
Quarter: 2011Q4

REPORT INFORMATION
  Report Type: 
  Country: None (occurrence: None)
  Receive Date: 20111101
  Receipt Date: 20111019
  Transmission Date: 20120403
  Serious: Yes (Hospitalization)
  Sender: FDA-Public Use
  Company Number: 1000024924

PATIENT
  Age: 78 Year
  Sex: Female

DRUGS (11)
  1. DEPAMIDE (VALPROMIDE) [Suspect]
  2. COUMADIN [Suspect]
     Indication: THROMBOSIS PROPHYLAXIS
     Dosage: ORAL
     Route: 048
     Dates: start: 20110602
  3. CLONAZEPAM [Suspect]
     Indication: EPILEPSY
     Dosage: ORAL
     Route: 048
  4. ESCITALOPRAM [Suspect]
     Indication: ANXIETY
     Dosage: ORAL
     Route: 048
     Dates: start: 20110602, end: 20110701
  5. GALANTAMINE HYDROBROMIDE [Suspect]
     Indication: DEMENTIA ALZHEIMER'S TYPE
     Dosage: ORAL
     Route: 048
  6. CALCIT VITAMINE D3 (CALCIUM CARBONATE, COLECALCIFEROL) [Suspect]
     Indication: CALCIUM DEFICIENCY
     Dosage: ORAL
     Route: 048
  7. DIOSMINE (DIOSMIN) [Suspect]
     Indication: SENSATION OF HEAVINESS
     Dosage: ORAL
     Route: 048
  8. CALCITRIOL [Suspect]
     Indication: VITAMIN D DEFICIENCY
     Dosage: ORAL
     Route: 048
  9. MEMANTINE HYDROCHLORIDE [Suspect]
     Indication: DEMENTIA ALZHEIMER'S TYPE
  10. TANAKAN (GINKGO BILOBA EXTRACT) [Suspect]
     Indication: DEMENTIA ALZHEIMER'S TYPE
     Dosage: ORAL
     Route: 048
  11. DEPAKINE (VALPROIC- ACID)(VALPROIC ACID) [Concomitant]

REACTIONS (1)
  - HAEMOLYTIC ANAEMIA [None]
